FAERS Safety Report 13105568 (Version 1)
Quarter: 2017Q1

REPORT INFORMATION
  Report Type: Spontaneous
  Country: US (occurrence: US)
  Receive Date: 20170111
  Receipt Date: 20170111
  Transmission Date: 20170428
  Serious: Yes (Hospitalization)
  Sender: FDA-Public Use
  Company Number: US-HERITAGE PHARMACEUTICALS-2016HTG00321

PATIENT
  Age: 49 Year
  Sex: Female

DRUGS (3)
  1. INSULIN [Concomitant]
     Active Substance: INSULIN NOS
     Dosage: UNK
     Route: 065
  2. ACETAZOLAMIDE. [Suspect]
     Active Substance: ACETAZOLAMIDE
     Indication: GLAUCOMA
     Dosage: 1000 MG, 1X/DAY
     Route: 065
  3. UNSPECIFIED GLAUCOMA MEDICATIONS [Concomitant]
     Indication: GLAUCOMA
     Route: 065

REACTIONS (1)
  - Hyperosmolar hyperglycaemic state [Recovering/Resolving]
